FAERS Safety Report 17591515 (Version 1)
Quarter: 2020Q1

REPORT INFORMATION
  Report Type: Spontaneous
  Country: KE (occurrence: KE)
  Receive Date: 20200327
  Receipt Date: 20200327
  Transmission Date: 20200409
  Serious: Yes (Hospitalization)
  Sender: FDA-Public Use
  Company Number: KE-GLAXOSMITHKLINE-KE2020EME044872

PATIENT

DRUGS (1)
  1. ZINNAT [Suspect]
     Active Substance: CEFUROXIME
     Indication: PRODUCT USED FOR UNKNOWN INDICATION
     Dosage: UNK

REACTIONS (3)
  - Hospitalisation [Unknown]
  - Lip swelling [Unknown]
  - Wrong technique in product usage process [Unknown]
